FAERS Safety Report 9399464 (Version 7)
Quarter: 2014Q2

REPORT INFORMATION
  Report Type: Report from Study
  Country: ES (occurrence: ES)
  Receive Date: 20130715
  Receipt Date: 20140409
  Transmission Date: 20141212
  Serious: Yes (Death, Hospitalization, Other)
  Sender: FDA-Public Use
  Company Number: ES-BIOGENIDEC-2013BI061267

PATIENT
  Age: 34 Year
  Sex: Female

DRUGS (1)
  1. TYSABRI [Suspect]
     Indication: MULTIPLE SCLEROSIS
     Route: 042
     Dates: start: 20091021, end: 20130510

REACTIONS (4)
  - Progressive multifocal leukoencephalopathy [Fatal]
  - Partial seizures with secondary generalisation [Unknown]
  - Status epilepticus [Unknown]
  - Immune reconstitution inflammatory syndrome [Unknown]
